FAERS Safety Report 7071243-6 (Version None)
Quarter: 2010Q4

REPORT INFORMATION
  Report Type: 
  Country: None (occurrence: None)
  Receive Date: 20101029
  Receipt Date: 20101018
  Transmission Date: 20110411
  Serious: Yes (Hospitalization)
  Sender: FDA-Public Use
  Company Number: US-ACTELION-A-NJ2010-39179

PATIENT
  Sex: Male

DRUGS (3)
  1. BOSENTAN TABLET UNKNOWN US MG [Suspect]
     Indication: PULMONARY ARTERIAL HYPERTENSION
     Dosage: UNK
     Route: 048
     Dates: start: 20100625
  2. COUMADIN [Concomitant]
  3. DIURETICS [Concomitant]

REACTIONS (9)
  - COLONOSCOPY [None]
  - DIALYSIS [None]
  - DYSPNOEA [None]
  - FLUID RETENTION [None]
  - POLYPECTOMY [None]
  - RECTAL HAEMORRHAGE [None]
  - RENAL FAILURE ACUTE [None]
  - STAPHYLOCOCCAL INFECTION [None]
  - URINARY TRACT INFECTION [None]
